APPROVED DRUG PRODUCT: DIGOXIN PEDIATRIC
Active Ingredient: DIGOXIN
Strength: 0.1MG/ML
Dosage Form/Route: INJECTABLE;INJECTION
Application: A040092 | Product #001
Applicant: HOSPIRA INC
Approved: Apr 25, 1996 | RLD: No | RS: No | Type: DISCN